FAERS Safety Report 15221427 (Version 1)
Quarter: 2018Q3

REPORT INFORMATION
  Report Type: Spontaneous
  Country: DK (occurrence: DK)
  Receive Date: 20180731
  Receipt Date: 20180731
  Transmission Date: 20181010
  Serious: Yes (Hospitalization, Other)
  Sender: FDA-Public Use
  Company Number: DK-PFIZER INC-2018302770

PATIENT
  Age: 72 Year
  Sex: Male

DRUGS (5)
  1. NOVORAPID [Concomitant]
     Active Substance: INSULIN ASPART
     Indication: TYPE 2 DIABETES MELLITUS
     Dosage: 20 IU, 1X/DAY
     Route: 058
     Dates: start: 20140801, end: 20180615
  2. INNOHEP [Concomitant]
     Active Substance: TINZAPARIN SODIUM
  3. LANTUS SOLOSTAR [Concomitant]
     Active Substance: INSULIN GLARGINE
     Indication: TYPE 2 DIABETES MELLITUS
     Dosage: 36 IU, 1X/DAY
     Route: 058
     Dates: start: 20140801, end: 20180615
  4. SOLU?MEDROL [Suspect]
     Active Substance: METHYLPREDNISOLONE SODIUM SUCCINATE
     Indication: TOXIC EPIDERMAL NECROLYSIS
     Dosage: DOSES VARIED FROM 40?80 MG X 1 DAILY
     Route: 042
     Dates: start: 20180314, end: 20180422
  5. SANDIMMUN [Suspect]
     Active Substance: CYCLOSPORINE
     Indication: TOXIC EPIDERMAL NECROLYSIS
     Dosage: 144 MG, 1X/DAY
     Route: 042
     Dates: start: 20180314, end: 20180410

REACTIONS (2)
  - Pneumocystis jirovecii pneumonia [Recovered/Resolved]
  - Lung infiltration [Recovered/Resolved]

NARRATIVE: CASE EVENT DATE: 201804
